FAERS Safety Report 4782435-0 (Version None)
Quarter: 2005Q3

REPORT INFORMATION
  Report Type: 
  Country: None (occurrence: None)
  Receive Date: 20050929
  Receipt Date: 20041020
  Transmission Date: 20060218
  Serious: No
  Sender: FDA-Public Use
  Company Number: 386151

PATIENT
  Age: 30 Year
  Sex: Female

DRUGS (1)
  1. COREG [Suspect]

REACTIONS (2)
  - FATIGUE [None]
  - WEIGHT INCREASED [None]
